FAERS Safety Report 4835160-1 (Version None)
Quarter: 2005Q4

REPORT INFORMATION
  Report Type: 
  Country: None (occurrence: None)
  Receive Date: 20051122
  Receipt Date: 20050921
  Transmission Date: 20060501
  Serious: Yes (Hospitalization, Other)
  Sender: FDA-Public Use
  Company Number: US-MERCK-0509USA03199

PATIENT
  Age: 70 Year
  Sex: Female
  Weight: 96 kg

DRUGS (8)
  1. VIOXX [Suspect]
     Indication: PAIN IN EXTREMITY
     Route: 048
     Dates: start: 19990812, end: 19990826
  2. VIOXX [Suspect]
     Route: 048
     Dates: start: 19990826, end: 20030930
  3. VIOXX [Suspect]
     Indication: SWELLING
     Route: 048
     Dates: start: 19990812, end: 19990826
  4. VIOXX [Suspect]
     Route: 048
     Dates: start: 19990826, end: 20030930
  5. ZANTAC [Concomitant]
     Route: 065
  6. ACIPHEX [Concomitant]
     Route: 065
  7. ARTHROTEC [Concomitant]
     Route: 065
  8. DARVOCET-N 100 [Concomitant]
     Route: 065

REACTIONS (39)
  - ABDOMINAL HERNIA [None]
  - ADRENAL ADENOMA [None]
  - ANAEMIA [None]
  - ANGINA PECTORIS [None]
  - ANXIETY [None]
  - ARTERIOSCLEROSIS CORONARY ARTERY [None]
  - ARTHRALGIA [None]
  - ARTHROPATHY [None]
  - ATRIAL FIBRILLATION [None]
  - BACK PAIN [None]
  - BLOOD CHOLESTEROL INCREASED [None]
  - BONE CYST [None]
  - BREAST DISORDER [None]
  - BUNDLE BRANCH BLOCK RIGHT [None]
  - CATARACT [None]
  - CHEST PAIN [None]
  - COLONIC POLYP [None]
  - CONSTIPATION [None]
  - DEAFNESS [None]
  - DEPRESSION [None]
  - DIVERTICULUM [None]
  - EPHELIDES [None]
  - FALL [None]
  - GASTROOESOPHAGEAL REFLUX DISEASE [None]
  - HYPERTENSION [None]
  - MALIGNANT HYPERTENSIVE HEART DISEASE [None]
  - MEMORY IMPAIRMENT [None]
  - MYALGIA [None]
  - MYOCARDIAL INFARCTION [None]
  - NERVE COMPRESSION [None]
  - NON-CARDIAC CHEST PAIN [None]
  - OEDEMA PERIPHERAL [None]
  - OESOPHAGEAL ULCER [None]
  - PAIN IN EXTREMITY [None]
  - PHARYNGITIS [None]
  - RENAL FAILURE CHRONIC [None]
  - SINUS BRADYCARDIA [None]
  - URINARY TRACT INFECTION [None]
  - UTERINE DISORDER [None]
